FAERS Safety Report 18687050 (Version 3)
Quarter: 2021Q1

REPORT INFORMATION
  Report Type: Other
  Country: US (occurrence: US)
  Receive Date: 20201231
  Receipt Date: 20210223
  Transmission Date: 20210419
  Serious: No
  Sender: FDA-Public Use
  Company Number: US-ROCHE-2603049

PATIENT
  Age: 50 Year
  Sex: Female
  Weight: 90.8 kg

DRUGS (18)
  1. OCREVUS [Suspect]
     Active Substance: OCRELIZUMAB
     Route: 042
     Dates: start: 20210111
  2. MODAFINIL. [Concomitant]
     Active Substance: MODAFINIL
     Indication: FATIGUE
     Dosage: DOES NOT TAKE IT ON WEEKENDS
     Route: 048
  3. BENADRYL [Concomitant]
     Active Substance: DIPHENHYDRAMINE HYDROCHLORIDE
     Indication: PREMEDICATION
  4. NUVIGIL [Concomitant]
     Active Substance: ARMODAFINIL
     Route: 048
     Dates: start: 2015
  5. CALCIUM + D3 [Concomitant]
     Active Substance: CALCIUM\CHOLECALCIFEROL
     Route: 048
     Dates: start: 2019
  6. CALCIUM CARBONATE. [Concomitant]
     Active Substance: CALCIUM CARBONATE
     Route: 048
  7. SERTRALINE [Concomitant]
     Active Substance: SERTRALINE HYDROCHLORIDE
     Indication: STRESS
     Route: 048
  8. OCREVUS [Suspect]
     Active Substance: OCRELIZUMAB
     Indication: RELAPSING-REMITTING MULTIPLE SCLEROSIS
     Route: 042
     Dates: start: 20191120
  9. OCREVUS [Suspect]
     Active Substance: OCRELIZUMAB
     Dosage: ONGOING YES, FIRST 300 MG INFUSION SPLIT BY TWO WEEKS
     Route: 042
     Dates: start: 20191204
  10. COLLAGEN [Concomitant]
     Active Substance: COLLAGEN
     Route: 048
  11. FENUGREEK [Concomitant]
     Active Substance: FENUGREEK SEED
     Route: 048
  12. CINNAMON. [Concomitant]
     Active Substance: CINNAMON
     Route: 048
     Dates: start: 2015
  13. ATORVASTATIN [Concomitant]
     Active Substance: ATORVASTATIN
     Route: 048
     Dates: start: 2018
  14. CALCIUM CARBONATE. [Concomitant]
     Active Substance: CALCIUM CARBONATE
     Route: 048
     Dates: start: 2018
  15. CHILDRENS IBUPROFEN [Concomitant]
     Active Substance: IBUPROFEN
  16. CHILDRENS TYLENOL [Concomitant]
     Active Substance: ACETAMINOPHEN
  17. SERTRALINE [Concomitant]
     Active Substance: SERTRALINE HYDROCHLORIDE
     Indication: ANXIETY
     Route: 048
     Dates: start: 2017
  18. VITAMIN B12 [Concomitant]
     Active Substance: CYANOCOBALAMIN

REACTIONS (8)
  - COVID-19 [Recovered/Resolved]
  - Menopause [Not Recovered/Not Resolved]
  - Inflammation [Not Recovered/Not Resolved]
  - Hypoaesthesia [Recovering/Resolving]
  - Fall [Unknown]
  - Balance disorder [Not Recovered/Not Resolved]
  - Memory impairment [Not Recovered/Not Resolved]
  - Weight increased [Not Recovered/Not Resolved]

NARRATIVE: CASE EVENT DATE: 2020
